FAERS Safety Report 4910031-0 (Version None)
Quarter: 2006Q1

REPORT INFORMATION
  Report Type: 
  Country: None (occurrence: None)
  Receive Date: 20060208
  Receipt Date: 20060127
  Transmission Date: 20060701
  Serious: Yes (Other)
  Sender: FDA-Public Use
  Company Number: 200610093BYL

PATIENT
  Age: 44 Year
  Sex: Female

DRUGS (4)
  1. AVELOX [Suspect]
     Indication: BRONCHITIS ACUTE
     Dosage: 400 MG, QD, ORAL
     Route: 048
     Dates: start: 20060110
  2. PL GRAN [Concomitant]
  3. MUSCOSOLVAN [Concomitant]
  4. ASTOMIN [Concomitant]

REACTIONS (4)
  - ASTHENIA [None]
  - FEELING ABNORMAL [None]
  - HYPOGLYCAEMIA [None]
  - SYNCOPE [None]
